FAERS Safety Report 4529521-8 (Version None)
Quarter: 2004Q4

REPORT INFORMATION
  Report Type: 
  Country: None (occurrence: None)
  Receive Date: 20041202
  Receipt Date: 20040929
  Transmission Date: 20050328
  Serious: No
  Sender: FDA-Public Use
  Company Number: 200420736BWH

PATIENT
  Age: 58 Year
  Sex: Male
  Weight: 63.5036 kg

DRUGS (1)
  1. LEVITRA [Suspect]
     Indication: ERECTILE DYSFUNCTION
     Dosage: 10 MG, ONCE, ORAL
     Route: 048
     Dates: start: 20040901

REACTIONS (1)
  - HEADACHE [None]
